FAERS Safety Report 5860508-9 (Version None)
Quarter: 2008Q3

REPORT INFORMATION
  Report Type: 
  Country: None (occurrence: None)
  Receive Date: 20080827
  Receipt Date: 20070928
  Transmission Date: 20090109
  Serious: No
  Sender: FDA-Public Use
  Company Number: US-ABBOTT-07P-163-0418712-00

PATIENT
  Sex: Male
  Weight: 106.6 kg

DRUGS (7)
  1. NIASPAN [Suspect]
     Indication: BLOOD CHOLESTEROL
     Route: 048
     Dates: start: 20060101, end: 20060101
  2. NIASPAN [Suspect]
     Route: 048
  3. NIASPAN [Suspect]
     Route: 048
     Dates: end: 20070901
  4. NIASPAN [Suspect]
     Route: 048
     Dates: start: 20070901, end: 20070927
  5. NIASPAN [Suspect]
     Route: 048
     Dates: start: 20070928
  6. ACETYLSALICYLIC ACID SRT [Concomitant]
     Indication: DRUG USE FOR UNKNOWN INDICATION
     Route: 048
  7. SILDENAFIL CITRATE [Concomitant]
     Indication: DRUG USE FOR UNKNOWN INDICATION
     Route: 048

REACTIONS (7)
  - BLOOD CHOLESTEROL INCREASED [None]
  - HYPOAESTHESIA [None]
  - JOINT CREPITATION [None]
  - MUSCULOSKELETAL STIFFNESS [None]
  - NEURALGIA [None]
  - SENSORY DISTURBANCE [None]
  - SEXUAL ACTIVITY INCREASED [None]
